FAERS Safety Report 10284749 (Version 1)
Quarter: 2014Q3

REPORT INFORMATION
  Report Type: Spontaneous
  Country: US (occurrence: None)
  Receive Date: 20140702
  Receipt Date: 20140702
  Transmission Date: 20150326
  Serious: Yes (Disabling)
  Sender: FDA-Public Use
  Company Number: None

PATIENT
  Age: 38 Year
  Sex: Female
  Weight: 55.34 kg

DRUGS (1)
  1. EFFEXOR XR [Suspect]
     Active Substance: VENLAFAXINE HYDROCHLORIDE
     Indication: DEPRESSION
     Dosage: 1 PER DAY, ONCE DAILY, TAKEN BY MOUTH
     Route: 048

REACTIONS (5)
  - Nausea [None]
  - Drug withdrawal syndrome [None]
  - Body temperature increased [None]
  - Paraesthesia [None]
  - Hypersomnia [None]

NARRATIVE: CASE EVENT DATE: 20140701
